FAERS Safety Report 16389319 (Version 1)
Quarter: 2019Q3

REPORT INFORMATION
  Report Type: Spontaneous
  Country: CA (occurrence: CA)
  Receive Date: 20190603
  Receipt Date: 20190603
  Transmission Date: 20191004
  Serious: Yes (Disabling)
  Sender: FDA-Public Use
  Company Number: None

PATIENT
  Age: 55 Year
  Sex: Female
  Weight: 69.75 kg

DRUGS (13)
  1. VITAMIN B6 [Concomitant]
     Active Substance: PYRIDOXINE HYDROCHLORIDE
  2. VITAMIN E [Concomitant]
     Active Substance: .ALPHA.-TOCOPHEROL
  3. CARNITINE [Concomitant]
     Active Substance: CARNITINE
  4. CA [Concomitant]
  5. CO-CIPROFLOXACIN HCL 500 MG [Suspect]
     Active Substance: CIPROFLOXACIN HYDROCHLORIDE
     Indication: CYSTITIS
     Dosage: ?          QUANTITY:1 TABLET(S);?
     Route: 048
     Dates: start: 20190424, end: 20190425
  6. ZINC. [Concomitant]
     Active Substance: ZINC
  7. N ACETYL CYSTEINE [Concomitant]
     Active Substance: ACETYLCYSTEINE
  8. VITAMIN B12 [Concomitant]
     Active Substance: CYANOCOBALAMIN
  9. VITAMIN C [Concomitant]
     Active Substance: ASCORBIC ACID
  10. VITAMIN D [Concomitant]
     Active Substance: VITAMIN D NOS
  11. MG [Concomitant]
     Active Substance: MAGNESIUM
  12. ALPHA LIPOIC ACID [Concomitant]
     Active Substance: .ALPHA.-LIPOIC ACID
  13. COQ10 [Concomitant]
     Active Substance: UBIDECARENONE

REACTIONS (12)
  - Tendonitis [None]
  - Myalgia [None]
  - Crying [None]
  - Night sweats [None]
  - Arthralgia [None]
  - Tinnitus [None]
  - Pain in extremity [None]
  - Paraesthesia [None]
  - Fatigue [None]
  - Cognitive disorder [None]
  - Musculoskeletal pain [None]
  - Suicidal ideation [None]

NARRATIVE: CASE EVENT DATE: 20190424
